FAERS Safety Report 6056045-1 (Version None)
Quarter: 2009Q1

REPORT INFORMATION
  Report Type: 
  Country: None (occurrence: None)
  Receive Date: 20090126
  Receipt Date: 20090109
  Transmission Date: 20090719
  Serious: Yes (Other)
  Sender: FDA-Public Use
  Company Number: 2009S1000558

PATIENT
  Age: 86 Year
  Sex: Female

DRUGS (9)
  1. ENALAPRIL MALEATE [Suspect]
     Indication: HYPERTENSION
     Dosage: 5 MG;ORAL;TWICE A DAY
     Route: 048
  2. CORADAREX (AMIODARONE) [Suspect]
     Indication: SUPRAVENTRICULAR TACHYCARDIA
     Dosage: 100 MG;TABLET;ORAL;TWICE A DAY
     Route: 048
  3. SPIRONOLACTONE [Suspect]
     Indication: OEDEMA
     Dosage: 50 MG;TABLET;ORAL;DAILY
     Route: 048
     Dates: end: 20080805
  4. TOREM /01036502/  (TORASEMIDE SODIUM) [Suspect]
     Indication: CARDIAC FAILURE
     Dosage: 5 MG;TABLET;ORAL;DAILY
     Route: 048
     Dates: end: 20080805
  5. ACETYLSALICYLIC ACID SRT [Suspect]
  6. CARVEDILOL (CARVEDILOL) [Concomitant]
  7. L-THYROXINE (LEVOTHYROXINE) [Concomitant]
  8. PENTAERYTHIRITOL TETRANITRATE TAB [Concomitant]
  9. PLAVIX [Concomitant]

REACTIONS (4)
  - GENERAL PHYSICAL CONDITION ABNORMAL [None]
  - HYPERKALAEMIA [None]
  - HYPONATRAEMIA [None]
  - HYPOTHYROIDISM [None]
